FAERS Safety Report 9871571 (Version 1)
Quarter: 2014Q1

REPORT INFORMATION
  Report Type: Report from Study
  Country: TR (occurrence: TR)
  Receive Date: 20140205
  Receipt Date: 20140205
  Transmission Date: 20141002
  Serious: Yes (Other)
  Sender: FDA-Public Use
  Company Number: TR-US-EMD SERONO, INC.-7266845

PATIENT
  Age: 51 Year
  Sex: Female

DRUGS (3)
  1. REBIF [Suspect]
     Indication: MULTIPLE SCLEROSIS
     Dates: end: 20140117
  2. PAROL [Suspect]
     Indication: ANALGESIC THERAPY
  3. ZOPROTEC [Suspect]
     Indication: HYPERTENSION

REACTIONS (2)
  - Angina pectoris [Recovered/Resolved]
  - Inappropriate schedule of drug administration [Unknown]
